FAERS Safety Report 24077444 (Version 1)
Quarter: 2024Q3

REPORT INFORMATION
  Report Type: Spontaneous
  Country: US (occurrence: US)
  Receive Date: 20240711
  Receipt Date: 20240711
  Transmission Date: 20241017
  Serious: No
  Sender: PIERRE FABRE MEDICAMENT
  Company Number: US-PFM-2023-03429

PATIENT
  Sex: Female

DRUGS (1)
  1. HEMANGEOL [Suspect]
     Active Substance: PROPRANOLOL HYDROCHLORIDE
     Indication: Haemangioma
     Dosage: 2.8 ML, BID (2/DAY), ALWAYS GIVE AFTER FEEDING, 9 HOURS APART
     Route: 048
     Dates: start: 20230518

REACTIONS (3)
  - Infantile spitting up [Unknown]
  - Sleep disorder [Unknown]
  - Product dose omission issue [Unknown]
